FAERS Safety Report 5756019-1 (Version None)
Quarter: 2008Q2

REPORT INFORMATION
  Report Type: 
  Country: None (occurrence: None)
  Receive Date: 20080602
  Receipt Date: 20080522
  Transmission Date: 20081010
  Serious: Yes (Hospitalization)
  Sender: FDA-Public Use
  Company Number: PHHY2008JP08687

PATIENT
  Age: 39 Year
  Sex: Female

DRUGS (2)
  1. DIOVAN [Suspect]
     Indication: HYPERTENSION
     Dosage: UNK
     Route: 048
     Dates: start: 20060501
  2. MIXED HORMONE PREPARATIONS [Suspect]

REACTIONS (3)
  - ASTHENIA [None]
  - HYPOKALAEMIA [None]
  - URINE POTASSIUM DECREASED [None]
